FAERS Safety Report 8485086-X (Version None)
Quarter: 2012Q3

REPORT INFORMATION
  Report Type: 
  Country: None (occurrence: None)
  Receive Date: 20120703
  Receipt Date: 20120621
  Transmission Date: 20120928
  Serious: Yes (Hospitalization)
  Sender: FDA-Public Use
  Company Number: JP-VERTEX PHARMACEUTICALS INC.-AE-2012-007789

PATIENT
  Age: 56 Year
  Sex: Female

DRUGS (14)
  1. CLARITIN REDITABS [Concomitant]
     Route: 048
     Dates: start: 20120308
  2. CELESTAMINE TAB [Concomitant]
     Route: 048
     Dates: start: 20120502
  3. CLARITIN [Concomitant]
     Route: 048
     Dates: start: 20120502, end: 20120514
  4. PEG-INTRON [Concomitant]
     Route: 058
     Dates: start: 20120308
  5. REBETOL [Concomitant]
     Route: 048
     Dates: start: 20120308
  6. ANTEBATE: OINTMENT [Concomitant]
     Route: 061
     Dates: start: 20120511
  7. OLOPATADINE HCL [Concomitant]
     Route: 048
     Dates: start: 20120515
  8. REBETOL [Concomitant]
     Route: 048
     Dates: start: 20120419
  9. LANSOPRAZOLE [Concomitant]
     Route: 048
     Dates: start: 20120312
  10. TELAVIC (TELAPREVIR) [Suspect]
     Indication: HEPATITIS C
     Route: 048
     Dates: start: 20120308, end: 20120517
  11. REBETOL [Concomitant]
     Route: 048
     Dates: start: 20120412, end: 20120419
  12. PREDNISOLONE SODIUM SUCCINATE INJ [Concomitant]
     Route: 048
     Dates: start: 20120518
  13. NERISONA [Concomitant]
     Route: 061
     Dates: start: 20120515
  14. LIDOMEX [Concomitant]
     Route: 061
     Dates: start: 20120515

REACTIONS (1)
  - RASH PAPULAR [None]
